FAERS Safety Report 9592111 (Version 2)
Quarter: 2013Q4

REPORT INFORMATION
  Report Type: Spontaneous
  Country: GR (occurrence: GR)
  Receive Date: 20131004
  Receipt Date: 20131031
  Transmission Date: 20140711
  Serious: Yes (Hospitalization, Other)
  Sender: FDA-Public Use
  Company Number: GR-AMGEN-GRCSP2013069128

PATIENT
  Age: 69 Year
  Sex: Female
  Weight: 68 kg

DRUGS (5)
  1. PROLIA [Suspect]
     Indication: OSTEOPOROSIS POSTMENOPAUSAL
     Dosage: 60 MG, Q6MO
     Route: 030
     Dates: start: 20121108
  2. VITAMIN D                          /00107901/ [Concomitant]
     Indication: BONE DISORDER
     Dosage: 1 MUG, UNK
  3. CALCIUM [Concomitant]
  4. SODIUM [Concomitant]
  5. CAL + D [Concomitant]

REACTIONS (3)
  - Femur fracture [Recovered/Resolved]
  - Hip fracture [Unknown]
  - Fall [Unknown]
